FAERS Safety Report 10016345 (Version 3)
Quarter: 2014Q2

REPORT INFORMATION
  Report Type: Report from Study
  Country: PT (occurrence: AR)
  Receive Date: 20140317
  Receipt Date: 20140401
  Transmission Date: 20141212
  Serious: Yes (Hospitalization, Congenital Anomaly)
  Sender: FDA-Public Use
  Company Number: 2012SP002763

PATIENT
  Age: 1 Day
  Sex: Male
  Weight: 2 kg

DRUGS (5)
  1. ESLICARBAZEPINE ACETATE [Suspect]
     Indication: EPILEPSY
     Route: 064
  2. LAMOTRIGINE [Concomitant]
     Indication: EPILEPSY
     Route: 064
     Dates: start: 201006
  3. LEVOTHYROXINE [Concomitant]
     Indication: HYPOTHYROIDISM
     Route: 064
     Dates: start: 2005
  4. LORAZEPAM [Concomitant]
     Indication: ANXIETY
     Route: 064
     Dates: start: 2010
  5. FOLIC ACID [Concomitant]
     Indication: PRODUCT USED FOR UNKNOWN INDICATION

REACTIONS (1)
  - Congenital anomaly [Not Recovered/Not Resolved]
